FAERS Safety Report 20604774 (Version 1)
Quarter: 2022Q1

REPORT INFORMATION
  Report Type: Spontaneous
  Country: BE (occurrence: BE)
  Receive Date: 20220317
  Receipt Date: 20220317
  Transmission Date: 20220423
  Serious: Yes (Other)
  Sender: FDA-Public Use
  Company Number: BE-SUN PHARMACEUTICAL INDUSTRIES LTD-2022R1-329428

PATIENT
  Age: 74 Year
  Sex: Female

DRUGS (2)
  1. OXALIPLATIN [Suspect]
     Active Substance: OXALIPLATIN
     Indication: Colorectal adenocarcinoma
     Dosage: UNK
     Route: 065
  2. FLUOROURACIL [Concomitant]
     Active Substance: FLUOROURACIL
     Indication: Colorectal adenocarcinoma
     Dosage: UNK
     Route: 065

REACTIONS (6)
  - Administration site extravasation [Recovered/Resolved]
  - Cellulitis [Recovered/Resolved]
  - Muscular weakness [Recovered/Resolved]
  - Skin induration [Recovered/Resolved]
  - Speech disorder [Recovered/Resolved]
  - Hyperaemia [Recovered/Resolved]
